FAERS Safety Report 14724086 (Version 5)
Quarter: 2019Q2

REPORT INFORMATION
  Report Type: Report from Study
  Country: US (occurrence: US)
  Receive Date: 20180405
  Receipt Date: 20190620
  Transmission Date: 20190711
  Serious: Yes (Other)
  Sender: FDA-Public Use
  Company Number: US-ACTELION-A-NJ2017-164081

PATIENT
  Age: 37 Year
  Sex: Female

DRUGS (7)
  1. OPSUMIT [Suspect]
     Active Substance: MACITENTAN
     Indication: PULMONARY HYPERTENSION
     Dosage: 10 MG, QD
     Route: 048
     Dates: start: 20150505
  2. UPTRAVI [Suspect]
     Active Substance: SELEXIPAG
     Indication: PULMONARY HYPERTENSION
     Dosage: 400 MCG, BID
     Route: 048
     Dates: start: 20171027
  3. WARFARIN [Concomitant]
     Active Substance: WARFARIN
     Dosage: 2 MG, QD
     Dates: start: 201506
  4. UPTRAVI [Suspect]
     Active Substance: SELEXIPAG
     Dosage: 600 MCG, BID
     Route: 048
     Dates: start: 20171128, end: 20190316
  5. REMODULIN [Concomitant]
     Active Substance: TREPROSTINIL
  6. UPTRAVI [Suspect]
     Active Substance: SELEXIPAG
     Dosage: 800 MCG, BID
     Route: 048
     Dates: start: 20171127, end: 20190316
  7. SILDENAFIL. [Concomitant]
     Active Substance: SILDENAFIL
     Dosage: 10 MG, TID
     Dates: start: 201604

REACTIONS (12)
  - Syncope [Unknown]
  - Pain in jaw [Recovered/Resolved]
  - Hypotension [Recovered/Resolved]
  - Nephrolithiasis [Recovered/Resolved]
  - Anaemia [Recovered/Resolved]
  - Sinusitis [Unknown]
  - Pulmonary arterial hypertension [Unknown]
  - Headache [Unknown]
  - Vomiting [Recovered/Resolved]
  - Nausea [Unknown]
  - Dizziness [Recovered/Resolved]
  - Condition aggravated [Unknown]

NARRATIVE: CASE EVENT DATE: 20171127
